FAERS Safety Report 9602856 (Version 1)
Quarter: 2013Q4

REPORT INFORMATION
  Report Type: Spontaneous
  Country: US (occurrence: US)
  Receive Date: 20131007
  Receipt Date: 20131007
  Transmission Date: 20140711
  Serious: Yes (Other)
  Sender: FDA-Public Use
  Company Number: US-PFIZER INC-2013283607

PATIENT
  Age: 68 Year
  Sex: Female

DRUGS (4)
  1. PREMARIN [Suspect]
     Indication: VULVOVAGINAL DRYNESS
     Dosage: UNK
  2. PREMARIN [Suspect]
     Indication: DYSPAREUNIA
  3. PREMPRO [Suspect]
     Indication: VULVOVAGINAL DRYNESS
     Dosage: UNK
     Route: 048
  4. PREMPRO [Suspect]
     Indication: DYSPAREUNIA

REACTIONS (2)
  - Haemorrhage [Unknown]
  - Drug ineffective [Unknown]
